FAERS Safety Report 9651154 (Version 1)
Quarter: 2013Q4

REPORT INFORMATION
  Report Type: Spontaneous
  Country: GB (occurrence: GB)
  Receive Date: 20131029
  Receipt Date: 20131029
  Transmission Date: 20140711
  Serious: Yes (Other)
  Sender: FDA-Public Use
  Company Number: PHFR2013GB006065

PATIENT
  Sex: Male

DRUGS (2)
  1. CLOZARIL [Suspect]
     Indication: SCHIZOPHRENIA
     Dosage: UNK UKN, UNK
     Route: 048
     Dates: start: 20050616
  2. CLOZARIL [Suspect]
     Dosage: 650 MG, QD
     Route: 048

REACTIONS (4)
  - Dysarthria [Unknown]
  - Schizophrenia [Unknown]
  - Hyperhidrosis [Unknown]
  - Diarrhoea [Unknown]
